FAERS Safety Report 24442887 (Version 2)
Quarter: 2024Q4

REPORT INFORMATION
  Report Type: Spontaneous
  Country: DE (occurrence: DE)
  Receive Date: 20241016
  Receipt Date: 20241017
  Transmission Date: 20250115
  Serious: No
  Sender: ROCHE
  Company Number: DE-ROCHE-3565571

PATIENT
  Sex: Male

DRUGS (1)
  1. HEMLIBRA [Suspect]
     Active Substance: EMICIZUMAB-KXWH
     Indication: Haemophilia
     Route: 058

REACTIONS (2)
  - Multiple use of single-use product [Unknown]
  - No adverse event [Unknown]

NARRATIVE: CASE EVENT DATE: 20240229
